FAERS Safety Report 6575871-3 (Version None)
Quarter: 2010Q1

REPORT INFORMATION
  Report Type: 
  Country: None (occurrence: None)
  Receive Date: 20100209
  Receipt Date: 20100125
  Transmission Date: 20100710
  Serious: Yes (Other)
  Sender: FDA-Public Use
  Company Number: GB-JNJFOC-20080802574

PATIENT
  Age: 7 Week
  Sex: Female

DRUGS (2)
  1. PARACETAMOL [Suspect]
     Route: 048
  2. PARACETAMOL [Suspect]
     Indication: DRUG USE FOR UNKNOWN INDICATION
     Dosage: DURATION OF TREATMENT 6-8 DAYS, MAXIMUM DOSE NOT SPECIFIED
     Route: 048

REACTIONS (1)
  - LIVER INJURY [None]
